FAERS Safety Report 4417299-8 (Version None)
Quarter: 2004Q2

REPORT INFORMATION
  Report Type: 
  Country: None (occurrence: None)
  Receive Date: 20040629
  Receipt Date: 20040427
  Transmission Date: 20050107
  Serious: Yes (Life-Threatening, Hospitalization)
  Sender: FDA-Public Use
  Company Number: USA040466093

PATIENT
  Age: 63 Year
  Sex: Female
  Weight: 118 kg

DRUGS (3)
  1. HUMALOG [Suspect]
     Indication: DIABETES MELLITUS
     Dosage: 5 U/12 IN THE EVENING
     Dates: start: 20010101
  2. HUMALOG MIX 75/25 [Suspect]
     Indication: DIABETES MELLITUS
     Dosage: 10 U/1 IN THE MORNING
     Dates: start: 20010101
  3. HUMULIN N [Suspect]
     Indication: DIABETES MELLITUS
     Dosage: 5 U/1 AT BEDTIME
     Dates: start: 20010101

REACTIONS (4)
  - AMNESIA [None]
  - ANKLE FRACTURE [None]
  - CARDIAC ARREST [None]
  - CORONARY ARTERY SURGERY [None]
